FAERS Safety Report 25256178 (Version 1)
Quarter: 2025Q2

REPORT INFORMATION
  Report Type: Spontaneous
  Country: CN (occurrence: CN)
  Receive Date: 20250430
  Receipt Date: 20250430
  Transmission Date: 20250716
  Serious: Yes (Other)
  Sender: PFIZER
  Company Number: CN-PFIZER INC-PV202500050518

PATIENT
  Age: 61 Year
  Sex: Male

DRUGS (1)
  1. BESPONSA [Suspect]
     Active Substance: INOTUZUMAB OZOGAMICIN

REACTIONS (6)
  - Hypokalaemia [Unknown]
  - Asthenia [Unknown]
  - Somnolence [Unknown]
  - Malaise [Unknown]
  - Hypophagia [Unknown]
  - Mental disorder [Unknown]

NARRATIVE: CASE EVENT DATE: 20250401
